FAERS Safety Report 13630457 (Version 1)
Quarter: 2017Q2

REPORT INFORMATION
  Report Type: Spontaneous
  Country: US (occurrence: US)
  Receive Date: 20170531
  Receipt Date: 20170531
  Transmission Date: 20170830
  Serious: No
  Sender: FDA-Public Use
  Company Number: US-ASTELLAS-1303995

PATIENT
  Sex: Female

DRUGS (5)
  1. TRAMADOL. [Concomitant]
     Active Substance: TRAMADOL
  2. WARFARIN [Concomitant]
     Active Substance: WARFARIN
  3. LOVASTATIN. [Concomitant]
     Active Substance: LOVASTATIN
  4. DETROL [Concomitant]
     Active Substance: TOLTERODINE TARTRATE
  5. TARCEVA [Suspect]
     Active Substance: ERLOTINIB HYDROCHLORIDE
     Indication: LUNG NEOPLASM MALIGNANT
     Route: 065
     Dates: start: 20131018

REACTIONS (1)
  - Dermatitis acneiform [Unknown]
